FAERS Safety Report 13147596 (Version 4)
Quarter: 2017Q2

REPORT INFORMATION
  Report Type: Report from Study
  Country: None (occurrence: US)
  Receive Date: 20170125
  Receipt Date: 20170609
  Transmission Date: 20170830
  Serious: Yes (Hospitalization)
  Sender: FDA-Public Use
  Company Number: US-ABBVIE-16K-163-1806944-00

PATIENT
  Age: 62 Year
  Sex: Female

DRUGS (2)
  1. PREDNISONE. [Suspect]
     Active Substance: PREDNISONE
     Indication: COLITIS ULCERATIVE
     Route: 065
     Dates: end: 201705
  2. HUMIRA [Suspect]
     Active Substance: ADALIMUMAB
     Indication: COLITIS ULCERATIVE
     Route: 058
     Dates: start: 2016, end: 20170514

REACTIONS (9)
  - Peripheral swelling [Recovering/Resolving]
  - Confusional state [Unknown]
  - Head titubation [Not Recovered/Not Resolved]
  - Suicidal ideation [Recovered/Resolved]
  - Dyspepsia [Recovering/Resolving]
  - Depression [Unknown]
  - Crying [Recovering/Resolving]
  - Decreased appetite [Not Recovered/Not Resolved]
  - Suicidal ideation [Recovered/Resolved]

NARRATIVE: CASE EVENT DATE: 2016
